FAERS Safety Report 6601467-0 (Version None)
Quarter: 2010Q1

REPORT INFORMATION
  Report Type: 
  Country: None (occurrence: None)
  Receive Date: 20100225
  Receipt Date: 20100213
  Transmission Date: 20100710
  Serious: Yes (Hospitalization)
  Sender: FDA-Public Use
  Company Number: US-ELI_LILLY_AND_COMPANY-US201002005473

PATIENT

DRUGS (1)
  1. EXENATIDE [Suspect]

REACTIONS (1)
  - MYOCARDIAL INFARCTION [None]
